FAERS Safety Report 10040220 (Version 1)
Quarter: 2014Q1

REPORT INFORMATION
  Report Type: Spontaneous
  Country: GB (occurrence: GB)
  Receive Date: 20140327
  Receipt Date: 20140327
  Transmission Date: 20141002
  Serious: Yes (Other)
  Sender: FDA-Public Use
  Company Number: GB-ROCHE-1371675

PATIENT
  Sex: Male

DRUGS (3)
  1. PEGASYS [Suspect]
     Indication: HEPATITIS C
     Route: 065
  2. COPEGUS [Suspect]
     Indication: HEPATITIS C
     Route: 065
  3. BOCEPREVIR [Concomitant]
     Indication: HEPATITIS C

REACTIONS (5)
  - Tenderness [Unknown]
  - Skin discolouration [Unknown]
  - Immunodeficiency [Unknown]
  - Pruritus [Unknown]
  - Pruritus [Unknown]
